FAERS Safety Report 7893813-5 (Version None)
Quarter: 2011Q4

REPORT INFORMATION
  Report Type: 
  Country: None (occurrence: None)
  Receive Date: 20111104
  Receipt Date: 20111026
  Transmission Date: 20120403
  Serious: Yes (Hospitalization)
  Sender: FDA-Public Use
  Company Number: JP-B.I. PHARMACEUTICALS,INC./RIDGEFIELD-2011-BP-21491NB

PATIENT
  Sex: Male
  Weight: 58 kg

DRUGS (13)
  1. CANDESARTAN CILEXETIL [Concomitant]
     Indication: HYPERTENSION
     Dosage: 8 MG
     Route: 065
  2. REBAMIPIDE OD [Concomitant]
     Dosage: 300 MG
     Route: 065
  3. MEXITIL [Concomitant]
     Indication: ARRHYTHMIA
     Dosage: 300 MG
     Route: 065
  4. STANZOME OD [Concomitant]
     Dosage: 15 MG
     Route: 065
  5. MAGNESIUM OXIDE [Concomitant]
     Dosage: 1.5 MG
     Route: 065
  6. PRADAXA [Suspect]
     Indication: ATRIAL FIBRILLATION
     Dosage: 220 MG
     Route: 048
     Dates: start: 20110414, end: 20110809
  7. ASPIRIN [Suspect]
     Indication: ARTERIAL THROMBOSIS
     Dosage: 100 MG
     Route: 048
     Dates: start: 20060101, end: 20110809
  8. ASPIRIN [Suspect]
     Dosage: 100 MG
     Route: 048
     Dates: start: 20110815
  9. PRADAXA [Suspect]
     Dosage: 220 MG
     Route: 065
     Dates: start: 20110815
  10. AMLODIPINE [Concomitant]
     Dosage: 5 MG
     Route: 065
  11. DUTASTERIDE [Concomitant]
     Indication: BENIGN PROSTATIC HYPERPLASIA
     Dosage: 0.5 MG
     Route: 065
  12. URIEF [Concomitant]
     Dosage: 8 MG
     Route: 065
  13. MIYA BM [Concomitant]
     Route: 065

REACTIONS (6)
  - DIARRHOEA [None]
  - HAEMORRHOIDS [None]
  - RENAL FAILURE ACUTE [None]
  - MELAENA [None]
  - URINARY TRACT INFECTION [None]
  - DEHYDRATION [None]
